FAERS Safety Report 9605254 (Version 2)
Quarter: 2013Q4

REPORT INFORMATION
  Report Type: Spontaneous
  Country: JP (occurrence: JP)
  Receive Date: 20131008
  Receipt Date: 20131106
  Transmission Date: 20140711
  Serious: Yes (Hospitalization)
  Sender: FDA-Public Use
  Company Number: JP-GLAXOSMITHKLINE-B0912887A

PATIENT
  Age: 0 Day
  Sex: Female
  Weight: 1.96 kg

DRUGS (4)
  1. FLOLAN [Suspect]
     Route: 064
  2. BERAPROST SODIUM [Suspect]
     Indication: PRODUCT USED FOR UNKNOWN INDICATION
     Route: 064
  3. HEPARIN SODIUM [Suspect]
     Route: 064
  4. EPOPROSTENOL [Concomitant]
     Route: 064

REACTIONS (4)
  - Hypopnoea [Unknown]
  - Low birth weight baby [Recovered/Resolved]
  - Hearing impaired [Unknown]
  - Foetal exposure during pregnancy [Unknown]
